FAERS Safety Report 8167359-3 (Version None)
Quarter: 2012Q1

REPORT INFORMATION
  Report Type: 
  Country: None (occurrence: None)
  Receive Date: 20120227
  Receipt Date: 20120221
  Transmission Date: 20120608
  Serious: Yes (Disabling)
  Sender: FDA-Public Use
  Company Number: IT-AMGEN-ITACT2012011256

PATIENT
  Age: 33 Year
  Sex: Female

DRUGS (6)
  1. CYCLOPHOSPHAMIDE [Concomitant]
  2. ONCOVIN [Concomitant]
  3. PREDNISONE [Concomitant]
  4. NEULASTA [Suspect]
     Indication: NON-HODGKIN'S LYMPHOMA
  5. DOXORUBICIN HCL [Concomitant]
  6. RITUXAN [Concomitant]

REACTIONS (3)
  - RESPIRATORY FAILURE [None]
  - BRONCHOSPASM [None]
  - CYANOSIS [None]
